FAERS Safety Report 10308051 (Version 1)
Quarter: 2014Q3

REPORT INFORMATION
  Report Type: Spontaneous
  Country: FR (occurrence: FR)
  Receive Date: 20140716
  Receipt Date: 20140716
  Transmission Date: 20150326
  Serious: Yes (Hospitalization)
  Sender: FDA-Public Use
  Company Number: FR-SA-2014SA093049

PATIENT
  Age: 59 Year
  Sex: Male

DRUGS (14)
  1. NOVORAPID [Concomitant]
     Active Substance: INSULIN ASPART
     Indication: DIABETES MELLITUS
     Route: 058
  2. NEURONTIN [Suspect]
     Active Substance: GABAPENTIN
     Indication: NEURALGIA
     Route: 048
     Dates: start: 200709, end: 20131205
  3. LERCAN [Concomitant]
     Active Substance: LERCANIDIPINE
     Route: 048
     Dates: start: 201301
  4. KARDEGIC [Concomitant]
     Active Substance: ASPIRIN LYSINE
     Route: 048
     Dates: start: 200601
  5. APROVEL [Concomitant]
     Active Substance: IRBESARTAN
     Route: 048
     Dates: start: 201206
  6. KEPPRA [Concomitant]
     Active Substance: LEVETIRACETAM
     Route: 048
     Dates: start: 201307
  7. FEXOFENADINE [Suspect]
     Active Substance: FEXOFENADINE\FEXOFENADINE HYDROCHLORIDE
     Indication: HYPERSENSITIVITY
     Route: 048
     Dates: start: 1974, end: 20140410
  8. PREVISCAN [Concomitant]
     Active Substance: FLUINDIONE
     Route: 048
     Dates: start: 200911
  9. CYMBALTA [Suspect]
     Active Substance: DULOXETINE HYDROCHLORIDE
     Indication: NEURALGIA
     Dosage: TAKEN FROM- END OF 2012
     Route: 048
     Dates: end: 20131119
  10. METFORMIN [Concomitant]
     Active Substance: METFORMIN HYDROCHLORIDE
     Indication: DIABETES MELLITUS
     Route: 048
     Dates: start: 200407
  11. LANTUS [Concomitant]
     Active Substance: INSULIN GLARGINE
     Indication: DIABETES MELLITUS
     Route: 058
  12. CRESTOR [Concomitant]
     Active Substance: ROSUVASTATIN CALCIUM
     Route: 048
     Dates: end: 201404
  13. RIVOTRIL [Concomitant]
     Active Substance: CLONAZEPAM
     Dosage: 3 DROPS IN THE MORNING AND MIDDAY, 10 DROPS IN THE EVENING
     Route: 048
     Dates: start: 20131205
  14. SOTALOL. [Concomitant]
     Active Substance: SOTALOL
     Route: 048
     Dates: start: 200911

REACTIONS (1)
  - Oromandibular dystonia [Not Recovered/Not Resolved]

NARRATIVE: CASE EVENT DATE: 20130801
